FAERS Safety Report 5609222-5 (Version None)
Quarter: 2008Q1

REPORT INFORMATION
  Report Type: 
  Country: None (occurrence: None)
  Receive Date: 20080129
  Receipt Date: 20080129
  Transmission Date: 20080703
  Serious: Yes (Hospitalization)
  Sender: FDA-Public Use
  Company Number: None

PATIENT
  Age: 57 Year
  Sex: Female
  Weight: 69.8539 kg

DRUGS (1)
  1. GABAPENTIN [Suspect]
     Indication: CONVULSION PROPHYLAXIS
     Dosage: 3 PILLS -1800 MG- 3 X DAILY PO
     Route: 048
     Dates: start: 19990601, end: 20080129

REACTIONS (6)
  - CONVULSION [None]
  - DRUG INEFFECTIVE [None]
  - FALL [None]
  - HEAD INJURY [None]
  - PHARMACEUTICAL PRODUCT COUNTERFEIT [None]
  - THERAPEUTIC RESPONSE UNEXPECTED WITH DRUG SUBSTITUTION [None]
